FAERS Safety Report 8737486 (Version 2)
Quarter: 2013Q4

REPORT INFORMATION
  Report Type: Report from Study
  Country: JP (occurrence: JP)
  Receive Date: 20120822
  Receipt Date: 20131101
  Transmission Date: 20140711
  Serious: Yes (Other)
  Sender: FDA-Public Use
  Company Number: JP-009507513-1207JPN012681

PATIENT
  Age: 68 Year
  Sex: Female
  Weight: 60 kg

DRUGS (6)
  1. PEGINTRON [Suspect]
     Indication: HEPATITIS C
     Dosage: 1.5MCG/KG/WEEK
     Route: 058
     Dates: start: 20120514, end: 20120618
  2. REBETOL [Suspect]
     Indication: HEPATITIS C
     Route: 048
     Dates: start: 20120514, end: 20120618
  3. TELAVIC [Suspect]
     Indication: HEPATITIS C
     Route: 048
     Dates: start: 20120514, end: 20120614
  4. URSO [Concomitant]
     Indication: HEPATITIS C
     Route: 048
  5. ALESION [Concomitant]
     Indication: DRY SKIN
     Route: 048
  6. ALLEGRA [Concomitant]
     Route: 048
     Dates: start: 20120518, end: 20120618

REACTIONS (1)
  - Malaise [Recovering/Resolving]
